FAERS Safety Report 5914965-X (Version None)
Quarter: 2008Q4

REPORT INFORMATION
  Report Type: 
  Country: None (occurrence: None)
  Receive Date: 20081010
  Receipt Date: 20080930
  Transmission Date: 20090506
  Serious: Yes (Other)
  Sender: FDA-Public Use
  Company Number: US-WYE-H06184308

PATIENT
  Sex: Female

DRUGS (2)
  1. EFFEXOR XR [Suspect]
     Indication: DEPRESSION
     Route: 048
     Dates: start: 19980801, end: 20040101
  2. REMERON [Concomitant]
     Indication: DEPRESSION
     Dosage: UNSPECIFIED
     Dates: end: 20080801

REACTIONS (2)
  - CONDITION AGGRAVATED [None]
  - OPEN ANGLE GLAUCOMA [None]
